FAERS Safety Report 17851656 (Version 3)
Quarter: 2020Q2

REPORT INFORMATION
  Report Type: Spontaneous
  Country: US (occurrence: US)
  Receive Date: 20200602
  Receipt Date: 20200616
  Transmission Date: 20200714
  Serious: Yes (Congenital Anomaly, Other)
  Sender: FDA-Public Use
  Company Number: NVSC2020US149440

PATIENT
  Age: 24 Week
  Sex: Male
  Weight: 4.03 kg

DRUGS (7)
  1. RISPERIDONE. [Suspect]
     Active Substance: RISPERIDONE
     Indication: FOETAL EXPOSURE DURING PREGNANCY
     Dosage: MATERNAL DOSE: 4 MG
     Route: 064
  2. RISPERIDONE. [Suspect]
     Active Substance: RISPERIDONE
     Dosage: MATERNAL DOSE: OVERDOSE
     Route: 064
  3. FLUOXETINE [Suspect]
     Active Substance: FLUOXETINE HYDROCHLORIDE
     Indication: FOETAL EXPOSURE DURING PREGNANCY
     Dosage: MATERNAL DOSE: 20 MG
     Route: 064
  4. LITHIUM. [Suspect]
     Active Substance: LITHIUM
     Indication: FOETAL EXPOSURE DURING PREGNANCY
     Dosage: MATRENAL DOSE: UNK
     Route: 064
  5. VALPROATE SODIUM. [Suspect]
     Active Substance: VALPROATE SODIUM
     Indication: FOETAL EXPOSURE DURING PREGNANCY
     Dosage: MATERNAL DOSE: 2500 MG, QD
     Route: 064
  6. ETHINYLOESTRADIOL [Suspect]
     Active Substance: ETHINYL ESTRADIOL
     Indication: FOETAL EXPOSURE DURING PREGNANCY
     Dosage: UNK
     Route: 064
  7. NORELGESTROMIN [Suspect]
     Active Substance: NORELGESTROMIN
     Indication: FOETAL EXPOSURE DURING PREGNANCY
     Dosage: UNK
     Route: 064

REACTIONS (5)
  - Arnold-Chiari malformation [Unknown]
  - Hydrocephalus [Unknown]
  - Spine malformation [Unknown]
  - Spina bifida [Unknown]
  - Foetal exposure during pregnancy [Unknown]
